FAERS Safety Report 12187495 (Version 1)
Quarter: 2016Q1

REPORT INFORMATION
  Report Type: Spontaneous
  Country: US (occurrence: US)
  Receive Date: 20160317
  Receipt Date: 20160317
  Transmission Date: 20160526
  Serious: No
  Sender: FDA-Public Use
  Company Number: US-ARBOR PHARMACEUTICALS, LLC-US-2015ARB000501

PATIENT

DRUGS (1)
  1. EDARBYCLOR [Suspect]
     Active Substance: AZILSARTAN KAMEDOXOMIL\CHLORTHALIDONE
     Indication: ESSENTIAL HYPERTENSION
     Dosage: 40/12.5 MG ONCE DAILY
     Route: 048
     Dates: start: 20141111

REACTIONS (4)
  - Chest discomfort [Unknown]
  - Blood potassium decreased [Unknown]
  - Nausea [Unknown]
  - Muscle twitching [Unknown]
